FAERS Safety Report 10424392 (Version 2)
Quarter: 2014Q3

REPORT INFORMATION
  Report Type: Spontaneous
  Country: JP (occurrence: JP)
  Receive Date: 20140902
  Receipt Date: 20140902
  Transmission Date: 20150326
  Serious: Yes (Hospitalization)
  Sender: FDA-Public Use
  Company Number: JP-BRISTOL-MYERS SQUIBB COMPANY-21274162

PATIENT
  Age: 81 Year
  Sex: Male

DRUGS (3)
  1. ELIQUIS [Suspect]
     Active Substance: APIXABAN
     Indication: THROMBOSIS PROPHYLAXIS
     Dosage: TABLETS.
     Route: 048
     Dates: start: 20140715, end: 20140729
  2. VASOLAN [Concomitant]
     Active Substance: VERAPAMIL HYDROCHLORIDE
  3. NEXIUM [Concomitant]
     Active Substance: ESOMEPRAZOLE MAGNESIUM

REACTIONS (4)
  - Blood creatine phosphokinase increased [Recovered/Resolved]
  - Aspartate aminotransferase increased [Unknown]
  - Haematuria [Unknown]
  - Blood lactate dehydrogenase increased [Unknown]

NARRATIVE: CASE EVENT DATE: 20140729
